FAERS Safety Report 5768774-5 (Version None)
Quarter: 2008Q2

REPORT INFORMATION
  Report Type: 
  Country: None (occurrence: None)
  Receive Date: 20080612
  Receipt Date: 20080312
  Transmission Date: 20081010
  Serious: No
  Sender: FDA-Public Use
  Company Number: US-ABBOTT-08P-163-0442194-00

PATIENT
  Sex: Female
  Weight: 97.2 kg

DRUGS (3)
  1. HUMIRA [Suspect]
     Indication: CROHN'S DISEASE
     Route: 058
     Dates: start: 20080129
  2. MERCAPTOPURINE [Concomitant]
     Indication: DRUG USE FOR UNKNOWN INDICATION
  3. MESALAMINE [Concomitant]
     Indication: DRUG USE FOR UNKNOWN INDICATION

REACTIONS (4)
  - ASTHENIA [None]
  - COUGH [None]
  - PAIN [None]
  - RESPIRATORY TRACT CONGESTION [None]
